FAERS Safety Report 9951260 (Version 2)
Quarter: 2014Q1

REPORT INFORMATION
  Report Type: Report from Study
  Country: US (occurrence: US)
  Receive Date: 20140304
  Receipt Date: 20140304
  Transmission Date: 20141002
  Serious: No
  Sender: FDA-Public Use
  Company Number: US-ABBVIE-13P-163-1052810-00

PATIENT
  Age: 45 Year
  Sex: Female
  Weight: 77.18 kg

DRUGS (2)
  1. HUMIRA [Suspect]
     Indication: PSORIATIC ARTHROPATHY
     Route: 058
     Dates: start: 201012, end: 201102
  2. HUMIRA [Suspect]
     Route: 058
     Dates: start: 20130216

REACTIONS (7)
  - Cough [Not Recovered/Not Resolved]
  - Upper respiratory tract infection [Not Recovered/Not Resolved]
  - Injection site erythema [Recovered/Resolved]
  - Drug ineffective [Unknown]
  - Injection site reaction [Recovered/Resolved]
  - Injection site papule [Recovered/Resolved]
  - Injection site pruritus [Recovered/Resolved]
